FAERS Safety Report 14004387 (Version 1)
Quarter: 2017Q3

REPORT INFORMATION
  Report Type: Spontaneous
  Country: US (occurrence: US)
  Receive Date: 20170922
  Receipt Date: 20170922
  Transmission Date: 20171128
  Serious: Yes (Other)
  Sender: FDA-Public Use
  Company Number: US-JNJFOC-20170719681

PATIENT
  Sex: Male

DRUGS (1)
  1. INVOKANA [Suspect]
     Active Substance: CANAGLIFLOZIN
     Indication: DIABETES MELLITUS
     Route: 048
     Dates: start: 20160402, end: 20170705

REACTIONS (4)
  - Adverse event [Unknown]
  - Diabetes mellitus inadequate control [Unknown]
  - Depression [Recovered/Resolved]
  - Anxiety [Recovered/Resolved]
